FAERS Safety Report 5150387-X (Version None)
Quarter: 2006Q4

REPORT INFORMATION
  Report Type: 
  Country: None (occurrence: None)
  Receive Date: 20061110
  Receipt Date: 20061110
  Transmission Date: 20070319
  Serious: Yes (Other)
  Sender: FDA-Public Use
  Company Number: None

PATIENT
  Age: 53 Year
  Sex: Female
  Weight: 74.8435 kg

DRUGS (6)
  1. EQUATE EXTRA SRENGTH ACETAMINOPHEN [Suspect]
     Indication: ARTHRALGIA
     Dosage: 2 CAPLETS 2 TIMES PERDAY PO
     Route: 048
     Dates: start: 20050201, end: 20050201
  2. EQUATE EXTRA SRENGTH ACETAMINOPHEN [Suspect]
     Indication: BONE PAIN
     Dosage: 2 CAPLETS 2 TIMES PERDAY PO
     Route: 048
     Dates: start: 20050201, end: 20050201
  3. EQUATE EXTRA SRENGTH ACETAMINOPHEN [Suspect]
     Indication: HEADACHE
     Dosage: 2 CAPLETS 2 TIMES PERDAY PO
     Route: 048
     Dates: start: 20050201, end: 20050201
  4. EQUATE EXTRA SRENGTH ACETAMINOPHEN [Suspect]
     Indication: ARTHRALGIA
     Dosage: 2 CAPLETS 2 TIMES PERDAY PO
     Route: 048
     Dates: start: 20061109, end: 20061109
  5. EQUATE EXTRA SRENGTH ACETAMINOPHEN [Suspect]
     Indication: BONE PAIN
     Dosage: 2 CAPLETS 2 TIMES PERDAY PO
     Route: 048
     Dates: start: 20061109, end: 20061109
  6. EQUATE EXTRA SRENGTH ACETAMINOPHEN [Suspect]
     Indication: HEADACHE
     Dosage: 2 CAPLETS 2 TIMES PERDAY PO
     Route: 048
     Dates: start: 20061109, end: 20061109

REACTIONS (6)
  - ARTHRALGIA [None]
  - DIARRHOEA [None]
  - DYSPEPSIA [None]
  - MALAISE [None]
  - POOR QUALITY DRUG ADMINISTERED [None]
  - VOMITING [None]
